FAERS Safety Report 5632169-5 (Version None)
Quarter: 2008Q1

REPORT INFORMATION
  Report Type: 
  Country: None (occurrence: None)
  Receive Date: 20080220
  Receipt Date: 20080213
  Transmission Date: 20080703
  Serious: Yes (Hospitalization, Other)
  Sender: FDA-Public Use
  Company Number: US-MERCK-0802USA03167

PATIENT
  Age: 47 Year
  Sex: Female

DRUGS (4)
  1. JANUMET [Suspect]
     Indication: DIABETES MELLITUS
     Route: 048
     Dates: start: 20080124, end: 20080101
  2. LIPITOR [Concomitant]
     Route: 065
     Dates: end: 20080101
  3. NEXIUM [Concomitant]
     Route: 065
     Dates: end: 20080101
  4. SYNTHROID [Concomitant]
     Route: 065
     Dates: end: 20080101

REACTIONS (2)
  - CONTUSION [None]
  - PLATELET COUNT DECREASED [None]
